FAERS Safety Report 24943949 (Version 1)
Quarter: 2025Q1

REPORT INFORMATION
  Report Type: Spontaneous
  Country: GB (occurrence: GB)
  Receive Date: 20250207
  Receipt Date: 20250207
  Transmission Date: 20250409
  Serious: Yes (Life-Threatening, Other)
  Sender: PFIZER
  Company Number: None

PATIENT
  Age: 48 Year
  Sex: Male

DRUGS (5)
  1. METHYLPREDNISOLONE [Suspect]
     Active Substance: METHYLPREDNISOLONE
     Dates: end: 20250106
  2. LIDOCAINE [Suspect]
     Active Substance: LIDOCAINE
     Indication: Adverse drug reaction
     Dates: end: 20250106
  3. LIDOCAINE [Suspect]
     Active Substance: LIDOCAINE
     Indication: Therapeutic procedure
  4. BUPIVACAINE [Suspect]
     Active Substance: BUPIVACAINE
     Indication: Adverse drug reaction
     Dates: end: 20250106
  5. BUPIVACAINE [Suspect]
     Active Substance: BUPIVACAINE
     Indication: Therapeutic procedure

REACTIONS (3)
  - Dizziness [Recovered/Resolved]
  - Erythema [Recovered/Resolved]
  - Anaphylactic reaction [Recovered/Resolved]

NARRATIVE: CASE EVENT DATE: 20250106
